FAERS Safety Report 16858858 (Version 1)
Quarter: 2019Q3

REPORT INFORMATION
  Report Type: Spontaneous
  Country: US (occurrence: US)
  Receive Date: 20190805
  Receipt Date: 20190805
  Transmission Date: 20191005
  Serious: Yes (Hospitalization)
  Sender: FDA-Public Use
  Company Number: None

PATIENT
  Age: 77 Year
  Sex: Male
  Weight: 135.62 kg

DRUGS (2)
  1. WARFARIN [Suspect]
     Active Substance: WARFARIN
     Indication: ATRIAL FIBRILLATION
     Dosage: ?          OTHER DOSE:7.5MG;?
     Route: 048
     Dates: start: 20130412
  2. ASPIRIN. [Suspect]
     Active Substance: ASPIRIN
     Indication: SURGERY
     Route: 048
     Dates: start: 20160901

REACTIONS (2)
  - Gastrointestinal haemorrhage [None]
  - Anaemia [None]

NARRATIVE: CASE EVENT DATE: 20190125
